FAERS Safety Report 10773684 (Version 1)
Quarter: 2015Q1

REPORT INFORMATION
  Report Type: Other
  Country: US (occurrence: US)
  Receive Date: 20150208
  Receipt Date: 20150208
  Transmission Date: 20150721
  Serious: Yes (Hospitalization)
  Sender: FDA-Public Use
  Company Number: US-ACORDA-ACO_107444_2014

PATIENT
  Sex: Female

DRUGS (1)
  1. AMPYRA [Suspect]
     Active Substance: DALFAMPRIDINE
     Indication: MULTIPLE SCLEROSIS
     Dosage: 10 MG, Q 12 HRS
     Route: 065

REACTIONS (6)
  - Urinary tract infection [Recovered/Resolved]
  - Urinary retention [Unknown]
  - Drug dose omission [Unknown]
  - Nasopharyngitis [Recovered/Resolved]
  - Adverse event [Unknown]
  - Urinary tract infection [Unknown]
